FAERS Safety Report 6657296-5 (Version None)
Quarter: 2010Q1

REPORT INFORMATION
  Report Type: 
  Country: None (occurrence: None)
  Receive Date: 20100319
  Receipt Date: 20091012
  Transmission Date: 20100710
  Serious: Yes (Other)
  Sender: FDA-Public Use
  Company Number: 2009SP030005

PATIENT
  Age: 61 Year
  Sex: Male

DRUGS (11)
  1. PEG-INTRON [Suspect]
     Indication: HEPATITIS C
     Dosage: 150 MCG; QW; SC
     Route: 058
     Dates: start: 20090308
  2. REBETOL [Suspect]
     Indication: HEPATITIS C
  3. PAXIL [Concomitant]
  4. LORATADINE [Concomitant]
  5. SUDAFED 12 HOUR [Concomitant]
  6. COLESTIPOL HYDROCHLORIDE [Concomitant]
  7. TYLENOL-500 [Concomitant]
  8. PROCRIT [Concomitant]
  9. VANCOMYCIN [Concomitant]
  10. CEFAZOLIN [Concomitant]
  11. KEFLEX [Concomitant]

REACTIONS (3)
  - CELLULITIS [None]
  - DEAFNESS [None]
  - DEAFNESS NEUROSENSORY [None]
